FAERS Safety Report 23276817 (Version 1)
Quarter: 2023Q4

REPORT INFORMATION
  Report Type: Spontaneous
  Country: CA (occurrence: CA)
  Receive Date: 20231208
  Receipt Date: 20231208
  Transmission Date: 20240110
  Serious: Yes (Life-Threatening)
  Sender: FDA-Public Use
  Company Number: CA-FreseniusKabi-FK202319802

PATIENT
  Age: 21 Year
  Sex: Female

DRUGS (2)
  1. FENTANYL CITRATE [Suspect]
     Active Substance: FENTANYL CITRATE
     Indication: Epidural anaesthesia
     Dosage: DOSAGE FORM: NOT SPECIFIED
     Route: 008
  2. BUPIVACAINE HYDROCHLORIDE [Suspect]
     Active Substance: BUPIVACAINE HYDROCHLORIDE\BUPIVACAINE HYDROCHLORIDE ANHYDROUS
     Indication: Epidural anaesthesia
     Route: 008

REACTIONS (5)
  - Dyspnoea [Unknown]
  - Headache [Unknown]
  - Oxygen saturation decreased [Unknown]
  - Vomiting [Unknown]
  - Somnolence [Unknown]
